FAERS Safety Report 19240962 (Version 1)
Quarter: 2021Q2

REPORT INFORMATION
  Report Type: Spontaneous
  Country: US (occurrence: US)
  Receive Date: 20210510
  Receipt Date: 20210510
  Transmission Date: 20210717
  Serious: Yes (Other)
  Sender: FDA-Public Use
  Company Number: None

PATIENT
  Sex: Male
  Weight: 91.8 kg

DRUGS (2)
  1. BUPRENORPHINE ?NALOXONE [Concomitant]
     Active Substance: BUPRENORPHINE HYDROCHLORIDE\NALOXONE HYDROCHLORIDE
     Dates: start: 20201021
  2. BUPRENORPHINE ?NALOXONE SUBLINGUAL TABLET [Suspect]
     Active Substance: BUPRENORPHINE\NALOXONE
     Dosage: ?          OTHER FREQUENCY:QD;?
     Route: 048
     Dates: start: 20180807

REACTIONS (1)
  - Drug withdrawal syndrome [None]
